FAERS Safety Report 25824964 (Version 1)
Quarter: 2025Q3

REPORT INFORMATION
  Report Type: Spontaneous
  Country: EU (occurrence: EU)
  Receive Date: 20250919
  Receipt Date: 20250919
  Transmission Date: 20251021
  Serious: Yes (Death, Other)
  Sender: PURDUE
  Company Number: EU-PURDUE-USA-2025-0320658

PATIENT
  Age: 19 Year
  Sex: Male

DRUGS (2)
  1. DRONABINOL [Suspect]
     Active Substance: DRONABINOL
     Indication: Product used for unknown indication
     Route: 048
  2. CANNABIS SATIVA SUBSP. INDICA TOP [Suspect]
     Active Substance: CANNABIS SATIVA SUBSP. INDICA TOP
     Indication: Product used for unknown indication
     Route: 065

REACTIONS (5)
  - Fall [Fatal]
  - Multiple injuries [Fatal]
  - Drug abuse [Unknown]
  - Hallucination [Unknown]
  - Drug screen positive [Unknown]
